FAERS Safety Report 10412379 (Version 1)
Quarter: 2014Q3

REPORT INFORMATION
  Report Type: Spontaneous
  Country: US (occurrence: US)
  Receive Date: 20140827
  Receipt Date: 20140827
  Transmission Date: 20150326
  Serious: Yes (Death, Hospitalization)
  Sender: FDA-Public Use
  Company Number: US-PFIZER INC-2014235636

PATIENT
  Age: 28 Year
  Sex: Female

DRUGS (2)
  1. TRAZODONE [Suspect]
     Active Substance: TRAZODONE HYDROCHLORIDE
     Dosage: 1000 MG, UNK
     Route: 048
  2. VERAPAMIL HCL [Suspect]
     Active Substance: VERAPAMIL HYDROCHLORIDE
     Dosage: 2000 MG, UNK
     Route: 048

REACTIONS (6)
  - Pulseless electrical activity [Fatal]
  - Vasoplegia syndrome [Fatal]
  - Heart rate decreased [Fatal]
  - Overdose [Fatal]
  - Respiratory failure [Fatal]
  - Hypotension [Fatal]
